FAERS Safety Report 7290900-X (Version None)
Quarter: 2011Q1

REPORT INFORMATION
  Report Type: 
  Country: None (occurrence: None)
  Receive Date: 20110214
  Receipt Date: 20110204
  Transmission Date: 20110831
  Serious: Yes (Hospitalization)
  Sender: FDA-Public Use
  Company Number: US-ASTRAZENECA-2010SE61261

PATIENT
  Age: 49 Year
  Sex: Female
  Weight: 51.7 kg

DRUGS (3)
  1. OMEPRAZOLE [Suspect]
     Route: 048
  2. NEXIUM [Suspect]
     Indication: GASTROOESOPHAGEAL REFLUX DISEASE
     Route: 048
  3. CLONAZEPAM [Concomitant]

REACTIONS (9)
  - OESOPHAGEAL PAIN [None]
  - DRUG INEFFECTIVE [None]
  - DYSPEPSIA [None]
  - GASTROOESOPHAGEAL REFLUX DISEASE [None]
  - DECREASED APPETITE [None]
  - RASH [None]
  - ABDOMINAL PAIN UPPER [None]
  - LIMB OPERATION [None]
  - DRUG DOSE OMISSION [None]
